FAERS Safety Report 13919180 (Version 1)
Quarter: 2017Q3

REPORT INFORMATION
  Report Type: Spontaneous
  Country: US (occurrence: None)
  Receive Date: 20170828
  Receipt Date: 20170828
  Transmission Date: 20171127
  Serious: Yes (Hospitalization)
  Sender: FDA-Public Use
  Company Number: None

PATIENT
  Age: 95 Year
  Sex: Male

DRUGS (1)
  1. DASATINIB [Suspect]
     Active Substance: DASATINIB
     Indication: CHRONIC MYELOID LEUKAEMIA
     Route: 048
     Dates: start: 20111207, end: 20111209

REACTIONS (9)
  - Refusal of treatment by patient [None]
  - Rash [None]
  - Chronic obstructive pulmonary disease [None]
  - Dyspnoea [None]
  - Eye swelling [None]
  - Angioedema [None]
  - Face oedema [None]
  - Oedema peripheral [None]
  - Cardiac failure congestive [None]

NARRATIVE: CASE EVENT DATE: 20111207
